FAERS Safety Report 9815079 (Version 2)
Quarter: 2014Q1

REPORT INFORMATION
  Report Type: Spontaneous
  Country: US (occurrence: US)
  Receive Date: 20140114
  Receipt Date: 20140205
  Transmission Date: 20141002
  Serious: Yes (Hospitalization, Other)
  Sender: FDA-Public Use
  Company Number: US-JNJFOC-20140102503

PATIENT
  Age: 52 Year
  Sex: Female
  Weight: 95.26 kg

DRUGS (4)
  1. ZYRTEC IR [Suspect]
     Route: 048
  2. ZYRTEC IR [Suspect]
     Indication: SEASONAL ALLERGY
     Dosage: 1-2 TABLETS DAILY SINCE 1980S
     Route: 048
     Dates: start: 1999
  3. LABETALOL [Suspect]
     Indication: PRODUCT USED FOR UNKNOWN INDICATION
     Route: 048
  4. FUROSEMIDE [Suspect]
     Indication: PRODUCT USED FOR UNKNOWN INDICATION
     Route: 048

REACTIONS (5)
  - Cerebrovascular accident [Recovered/Resolved]
  - Pulmonary thrombosis [Recovered/Resolved]
  - Extra dose administered [Unknown]
  - Drug ineffective [Unknown]
  - Product blister packaging issue [Unknown]
